FAERS Safety Report 9375620 (Version 3)
Quarter: 2014Q3

REPORT INFORMATION
  Report Type: Spontaneous
  Country: US (occurrence: US)
  Receive Date: 20130628
  Receipt Date: 20140716
  Transmission Date: 20150326
  Serious: Yes (Death, Hospitalization, Other)
  Sender: FDA-Public Use
  Company Number: US-MERCK-1306USA013706

PATIENT
  Sex: Female
  Weight: 90.7 kg

DRUGS (1)
  1. JANUVIA [Suspect]
     Active Substance: SITAGLIPTIN PHOSPHATE
     Indication: TYPE 2 DIABETES MELLITUS
     Dosage: 100 MG, QD
     Route: 048
     Dates: start: 200808

REACTIONS (27)
  - Arthritis [Unknown]
  - Substance-induced psychotic disorder [Unknown]
  - Deep vein thrombosis [Unknown]
  - Diverticulum [Unknown]
  - Hypothyroidism [Unknown]
  - Blood potassium decreased [Unknown]
  - Cerebral calcification [Unknown]
  - Exostosis [Unknown]
  - Abdominal pain [Unknown]
  - Ischaemia [Unknown]
  - Bile duct cancer [Unknown]
  - Small intestinal obstruction [Unknown]
  - White blood cell count increased [Unknown]
  - Autoimmune thyroiditis [Unknown]
  - Adrenal mass [Unknown]
  - Abdominal hernia [Unknown]
  - Macular degeneration [Unknown]
  - Cellulitis [Unknown]
  - Atrial fibrillation [Unknown]
  - Vena cava filter insertion [Unknown]
  - Knee arthroplasty [Unknown]
  - Arthritis infective [Unknown]
  - Hypertension [Unknown]
  - Pancreatic carcinoma metastatic [Fatal]
  - Metastases to liver [Unknown]
  - Emotional disorder [Unknown]
  - Osteoporosis [Unknown]

NARRATIVE: CASE EVENT DATE: 200911
